FAERS Safety Report 5657171-9 (Version None)
Quarter: 2008Q1

REPORT INFORMATION
  Report Type: 
  Country: None (occurrence: None)
  Receive Date: 20080310
  Receipt Date: 20080226
  Transmission Date: 20080703
  Serious: Yes (Life-Threatening, Hospitalization)
  Sender: FDA-Public Use
  Company Number: GB-AMGEN-UK267718

PATIENT
  Sex: Male
  Weight: 84 kg

DRUGS (2)
  1. PANITUMUMAB [Suspect]
     Indication: COLORECTAL CANCER
     Route: 042
     Dates: start: 20071112, end: 20080131
  2. IRINOTECAN [Suspect]
     Route: 042
     Dates: start: 20071112, end: 20080131

REACTIONS (1)
  - INTESTINAL PERFORATION [None]
